FAERS Safety Report 15573697 (Version 1)
Quarter: 2018Q4

REPORT INFORMATION
  Report Type: Spontaneous
  Country: RO (occurrence: RO)
  Receive Date: 20181101
  Receipt Date: 20181101
  Transmission Date: 20190205
  Serious: Yes (Death)
  Sender: FDA-Public Use
  Company Number: RO-ASTRAZENECA-2018SF42111

PATIENT
  Age: 80 Year
  Sex: Female

DRUGS (2)
  1. NATURALLY OCCURRING PRODUCT [Concomitant]
  2. SYMBICORT [Suspect]
     Active Substance: BUDESONIDE\FORMOTEROL FUMARATE DIHYDRATE
     Dosage: 160/4.5 MCG, 640 UNITS 2 PUFFS, TWICE DAILY
     Route: 055

REACTIONS (1)
  - Lung cancer metastatic [Fatal]
